FAERS Safety Report 14611281 (Version 1)
Quarter: 2018Q1

REPORT INFORMATION
  Report Type: Spontaneous
  Country: US (occurrence: US)
  Receive Date: 20180308
  Receipt Date: 20180308
  Transmission Date: 20180509
  Serious: No
  Sender: FDA-Public Use
  Company Number: US-009507513-1802USA009177

PATIENT
  Sex: Female
  Weight: 153.29 kg

DRUGS (1)
  1. NEXPLANON [Suspect]
     Active Substance: ETONOGESTREL
     Indication: CONTRACEPTION
     Dosage: 1 IMPLANT ONCE PER THREE YEARS
     Route: 059
     Dates: start: 20161010

REACTIONS (8)
  - Complication associated with device [Not Recovered/Not Resolved]
  - Weight increased [Not Recovered/Not Resolved]
  - Menstrual disorder [Not Recovered/Not Resolved]
  - Complication associated with device [Recovered/Resolved]
  - Polymenorrhoea [Not Recovered/Not Resolved]
  - Device dislocation [Not Recovered/Not Resolved]
  - Menometrorrhagia [Not Recovered/Not Resolved]
  - Bacterial vaginosis [Not Recovered/Not Resolved]
